FAERS Safety Report 5494389-2 (Version None)
Quarter: 2007Q4

REPORT INFORMATION
  Report Type: 
  Country: None (occurrence: None)
  Receive Date: 20071015
  Receipt Date: 20070612
  Transmission Date: 20080405
  Serious: No
  Sender: FDA-Public Use
  Company Number: S07-USA-02542-01

PATIENT
  Age: 42 Year
  Sex: Female

DRUGS (4)
  1. LEXAPRO [Suspect]
     Indication: DEPRESSION
     Dosage: 10 MG QD PO
     Route: 048
     Dates: end: 20070201
  2. LEXAPRO [Suspect]
     Indication: PAIN
     Dosage: 10 MG QD PO
     Route: 048
     Dates: end: 20070201
  3. ALEVE [Suspect]
  4. ADVIL [Suspect]

REACTIONS (2)
  - HYPERSENSITIVITY [None]
  - NAUSEA [None]
